FAERS Safety Report 11107242 (Version 3)
Quarter: 2015Q3

REPORT INFORMATION
  Report Type: Spontaneous
  Country: AU (occurrence: AU)
  Receive Date: 20150512
  Receipt Date: 20150826
  Transmission Date: 20151125
  Serious: Yes (Death, Hospitalization, Other)
  Sender: FDA-Public Use
  Company Number: AU-ELI_LILLY_AND_COMPANY-AU201505003547

PATIENT
  Age: 83 Year
  Sex: Male

DRUGS (3)
  1. ZYPREXA [Suspect]
     Active Substance: OLANZAPINE
     Indication: PRODUCT USED FOR UNKNOWN INDICATION
     Dosage: 7.5 MG, QD
     Route: 048
  2. VENLAFAXINE [Concomitant]
     Active Substance: VENLAFAXINE HYDROCHLORIDE
     Indication: PRODUCT USED FOR UNKNOWN INDICATION
     Dosage: UNK, UNKNOWN
     Route: 065
  3. AXCEL PROMETHAZINE [Interacting]
     Active Substance: PROMETHAZINE HYDROCHLORIDE
     Indication: PRODUCT USED FOR UNKNOWN INDICATION
     Dosage: UNK, UNKNOWN
     Route: 065

REACTIONS (12)
  - Anxiety [Unknown]
  - Drowning [Fatal]
  - Arteriosclerosis coronary artery [Fatal]
  - Suicidal ideation [Unknown]
  - Delirium [Unknown]
  - Bipolar disorder [Unknown]
  - Antidepressant drug level increased [Unknown]
  - Delirium [Unknown]
  - Confusional state [Unknown]
  - Antipsychotic drug level increased [Unknown]
  - Bone lesion [Unknown]
  - Drug interaction [Unknown]

NARRATIVE: CASE EVENT DATE: 20150713
